FAERS Safety Report 24594507 (Version 1)
Quarter: 2024Q4

REPORT INFORMATION
  Report Type: Spontaneous
  Country: US (occurrence: US)
  Receive Date: 20241108
  Receipt Date: 20241108
  Transmission Date: 20250115
  Serious: Yes (Hospitalization, Other)
  Sender: INCYTE
  Company Number: US-EVENT-000341

PATIENT

DRUGS (1)
  1. JAKAFI [Suspect]
     Active Substance: RUXOLITINIB
     Indication: Chronic graft versus host disease
     Dosage: 5 MILLIGRAM, BID (1 TABLET TWICE A DAY)
     Route: 048
     Dates: start: 20241009

REACTIONS (1)
  - Platelet count decreased [Not Recovered/Not Resolved]
